FAERS Safety Report 8047017-6 (Version None)
Quarter: 2012Q1

REPORT INFORMATION
  Report Type: 
  Country: None (occurrence: None)
  Receive Date: 20120116
  Receipt Date: 20111122
  Transmission Date: 20120608
  Serious: No
  Sender: FDA-Public Use
  Company Number: US-MYLANLABS-2011S1024455

PATIENT
  Age: 66 Year
  Sex: Male

DRUGS (5)
  1. PREVACID [Concomitant]
  2. CHONDROITIN W/GLUCOSAMINE /01430901/ [Concomitant]
  3. TAMSULOSIN HCL [Suspect]
     Route: 048
     Dates: start: 20111117
  4. ASPIRIN [Concomitant]
  5. TAMSULOSIN HCL [Suspect]
     Indication: BENIGN PROSTATIC HYPERPLASIA
     Route: 048
     Dates: start: 20111115, end: 20111117

REACTIONS (4)
  - WRONG TECHNIQUE IN DRUG USAGE PROCESS [None]
  - SOMNOLENCE [None]
  - NASAL CONGESTION [None]
  - DIZZINESS [None]
